FAERS Safety Report 7000938-5 (Version None)
Quarter: 2010Q3

REPORT INFORMATION
  Report Type: 
  Country: None (occurrence: None)
  Receive Date: 20100920
  Receipt Date: 20100913
  Transmission Date: 20110219
  Serious: Yes (Death, Other)
  Sender: FDA-Public Use
  Company Number: FR-SANOFI-AVENTIS-2010SA044102

PATIENT
  Age: 43 Year
  Sex: Male

DRUGS (6)
  1. LOVENOX [Suspect]
     Indication: THROMBOSIS PROPHYLAXIS
     Route: 058
     Dates: start: 20100525, end: 20100609
  2. TAVANIC [Concomitant]
  3. ATAZANAVIR [Concomitant]
     Dates: start: 20100519
  4. ABACAVIR SULFATE AND LAMIVUDINE [Concomitant]
     Dates: start: 20100519
  5. PIPERACILLIN AND TAZOBACTAM [Concomitant]
  6. TRIFLUCAN [Concomitant]

REACTIONS (2)
  - HEPARIN-INDUCED THROMBOCYTOPENIA TEST [None]
  - THROMBOCYTOPENIA [None]
